FAERS Safety Report 17367818 (Version 5)
Quarter: 2020Q1

REPORT INFORMATION
  Report Type: Spontaneous
  Country: GB (occurrence: GB)
  Receive Date: 20200204
  Receipt Date: 20200313
  Transmission Date: 20200409
  Serious: Yes (Life-Threatening, Hospitalization, Disabling, Other)
  Sender: FDA-Public Use
  Company Number: GB-SA-2020SA028781

PATIENT
  Age: 44 Year
  Sex: Female
  Weight: 113 kg

DRUGS (13)
  1. PIPERACILLIN AND TAZOBACTAM [Concomitant]
     Active Substance: PIPERACILLIN SODIUM\TAZOBACTAM SODIUM
     Indication: ANTIBIOTIC THERAPY
     Dosage: 4.5 G, TID
     Route: 042
     Dates: start: 20190917, end: 20190918
  2. MEROPENEM. [Concomitant]
     Active Substance: MEROPENEM
     Indication: ANTIBIOTIC THERAPY
     Dosage: 1 G, TID
     Route: 042
     Dates: start: 20190918, end: 20191001
  3. CLARITHROMYCIN. [Concomitant]
     Active Substance: CLARITHROMYCIN
     Indication: ANTIBIOTIC THERAPY
     Dosage: 500 MG, QD
     Route: 042
     Dates: start: 20190923, end: 20190925
  4. CASPOFUNGIN [Concomitant]
     Active Substance: CASPOFUNGIN
     Indication: ANTIFUNGAL TREATMENT
     Dosage: 70 MG, QD
     Route: 042
     Dates: start: 20190922, end: 20190929
  5. THYMOGLOBULINE [Suspect]
     Active Substance: LAPINE T-LYMPHOCYTE IMMUNE GLOBULIN
     Indication: PROPHYLAXIS AGAINST TRANSPLANT REJECTION
     Dosage: 320 MG, QD
     Route: 042
     Dates: start: 20190916, end: 20190918
  6. VANCOMYCIN [Concomitant]
     Active Substance: VANCOMYCIN
     Dosage: 500 MG, QID
     Route: 042
     Dates: start: 201909, end: 20191001
  7. FILGRASTI M [Concomitant]
     Dosage: 30 MILLION U QD
     Route: 042
     Dates: start: 20190924, end: 20190924
  8. ALBUMIN [Concomitant]
     Active Substance: ALBUMIN HUMAN
     Dosage: 20 %
     Route: 042
     Dates: start: 20190920, end: 20190923
  9. THYMOGLOBULINE [Suspect]
     Active Substance: LAPINE T-LYMPHOCYTE IMMUNE GLOBULIN
     Indication: AUTOLOGOUS BONE MARROW TRANSPLANTATION THERAPY
  10. FUROSEMIDE. [Concomitant]
     Active Substance: FUROSEMIDE
     Indication: DIURETIC THERAPY
     Dosage: 40 MG, QD
     Route: 042
     Dates: start: 20190919, end: 20190919
  11. TEICOPLANIN [Concomitant]
     Active Substance: TEICOPLANIN
     Indication: ANTIBIOTIC THERAPY
     Dosage: 400 MG, QD
     Route: 042
     Dates: start: 20190919, end: 20190920
  12. VANCOMYCIN [Concomitant]
     Active Substance: VANCOMYCIN
     Indication: ANTIBIOTIC THERAPY
     Dosage: 1.25 G, QD
     Route: 042
     Dates: start: 20190920, end: 20190920
  13. HYDROCORTISONE. [Concomitant]
     Active Substance: HYDROCORTISONE
     Indication: STEROID THERAPY
     Dosage: VARIOUS DOSES
     Route: 042
     Dates: start: 20190920, end: 20191008

REACTIONS (7)
  - Oliguria [Recovering/Resolving]
  - Blood creatine increased [Recovering/Resolving]
  - Dyspnoea [Recovering/Resolving]
  - Pleural effusion [Recovering/Resolving]
  - Lung infiltration [Recovering/Resolving]
  - Renal failure [Unknown]
  - Pulmonary veno-occlusive disease [Unknown]

NARRATIVE: CASE EVENT DATE: 201909
